FAERS Safety Report 4305799-0 (Version None)
Quarter: 2004Q1

REPORT INFORMATION
  Report Type: 
  Country: None (occurrence: None)
  Receive Date: 20040225
  Receipt Date: 20040210
  Transmission Date: 20041129
  Serious: Yes (Hospitalization)
  Sender: FDA-Public Use
  Company Number: CERZ-10514

PATIENT
  Age: 55 Year
  Sex: Male
  Weight: 78.8 kg

DRUGS (2)
  1. CEREZYME [Suspect]
     Indication: GAUCHER'S DISEASE
     Dosage: 1600 UNITS Q2WKS IV
     Route: 042
     Dates: start: 19960701
  2. FLOLAN [Concomitant]

REACTIONS (1)
  - UNEVALUABLE EVENT [None]
